FAERS Safety Report 5476440-9 (Version None)
Quarter: 2007Q4

REPORT INFORMATION
  Report Type: 
  Country: None (occurrence: None)
  Receive Date: 20071003
  Receipt Date: 20070921
  Transmission Date: 20080405
  Serious: Yes (Other)
  Sender: FDA-Public Use
  Company Number: BR-PFIZER INC-2007080716

PATIENT
  Sex: Male

DRUGS (2)
  1. MISOPROSTOL [Suspect]
     Route: 064
  2. MISOPROSTOL [Suspect]
     Route: 064

REACTIONS (3)
  - DRUG EXPOSURE DURING PREGNANCY [None]
  - POLAND'S SYNDROME [None]
  - RETINAL ANOMALY CONGENITAL [None]
